FAERS Safety Report 14135653 (Version 2)
Quarter: 2017Q4

REPORT INFORMATION
  Report Type: Report from Study
  Country: US (occurrence: US)
  Receive Date: 20171027
  Receipt Date: 20171218
  Transmission Date: 20180321
  Serious: Yes (Death, Life-Threatening, Hospitalization)
  Sender: FDA-Public Use
  Company Number: US-JNJFOC-20171031714

PATIENT
  Age: 40 Year
  Sex: Male
  Weight: 97.9 kg

DRUGS (2)
  1. OLARATUMAB [Suspect]
     Active Substance: OLARATUMAB
     Indication: PERIPHERAL NERVE SHEATH TUMOUR MALIGNANT
     Route: 042
     Dates: start: 20160129, end: 20160129
  2. DOXIL [Suspect]
     Active Substance: DOXORUBICIN HYDROCHLORIDE
     Indication: PERIPHERAL NERVE SHEATH TUMOUR MALIGNANT
     Route: 042
     Dates: start: 20160120, end: 20160120

REACTIONS (3)
  - Product use in unapproved indication [Unknown]
  - Off label use [Unknown]
  - Colitis [Fatal]

NARRATIVE: CASE EVENT DATE: 20160120
